FAERS Safety Report 11266168 (Version 1)
Quarter: 2015Q3

REPORT INFORMATION
  Report Type: Spontaneous
  Country: US (occurrence: US)
  Receive Date: 20150713
  Receipt Date: 20150713
  Transmission Date: 20151125
  Serious: Yes (Hospitalization, Other)
  Sender: FDA-Public Use
  Company Number: US-MPIJNJ-2012-08503

PATIENT
  Age: 78 Year
  Sex: Male
  Weight: 94.33 kg

DRUGS (3)
  1. VELCADE [Suspect]
     Active Substance: BORTEZOMIB
     Dosage: 1.8 MG, CYCLIC
     Route: 058
     Dates: start: 20120806, end: 20120813
  2. VELCADE [Suspect]
     Active Substance: BORTEZOMIB
     Indication: PLASMA CELL MYELOMA
     Dosage: 2.6 MG, CYCLIC
     Route: 058
     Dates: start: 20120705, end: 20120730
  3. DEXAMETHASONE. [Suspect]
     Active Substance: DEXAMETHASONE
     Indication: PLASMA CELL MYELOMA
     Dosage: 40 MG, CYCLIC
     Route: 048
     Dates: start: 20120705, end: 20120813

REACTIONS (2)
  - Atrial fibrillation [Recovered/Resolved]
  - Dyspnoea [Recovered/Resolved]

NARRATIVE: CASE EVENT DATE: 20120820
